FAERS Safety Report 7582056-0 (Version None)
Quarter: 2011Q2

REPORT INFORMATION
  Report Type: 
  Country: None (occurrence: None)
  Receive Date: 20110630
  Receipt Date: 20110620
  Transmission Date: 20111010
  Serious: No
  Sender: FDA-Public Use
  Company Number: US-BIOGENIDEC-2011BI022639

PATIENT
  Age: 44 Year
  Sex: Male

DRUGS (4)
  1. TYSABRI [Suspect]
     Route: 042
     Dates: start: 20100507, end: 20100928
  2. TYSABRI [Suspect]
     Indication: MULTIPLE SCLEROSIS
     Route: 042
     Dates: start: 20110504
  3. TYSABRI [Suspect]
     Route: 042
     Dates: start: 20080118, end: 20090203
  4. TYSABRI [Suspect]
     Route: 042

REACTIONS (1)
  - DRUG EFFECT DECREASED [None]
